FAERS Safety Report 9032749 (Version 1)
Quarter: 2013Q1

REPORT INFORMATION
  Report Type: Spontaneous
  Country: US (occurrence: US)
  Receive Date: 20130128
  Receipt Date: 20130128
  Transmission Date: 20140127
  Serious: Yes (Other)
  Sender: FDA-Public Use
  Company Number: US-BIOGENIDEC-2013BI007094

PATIENT
  Sex: Female
  Weight: 90 kg

DRUGS (3)
  1. AVONEX [Suspect]
     Indication: MULTIPLE SCLEROSIS
     Route: 030
     Dates: start: 20101130
  2. COUMADIN [Concomitant]
  3. VALIUM [Concomitant]

REACTIONS (2)
  - Pelvic fracture [Unknown]
  - Renal surgery [Unknown]
